FAERS Safety Report 11434197 (Version 1)
Quarter: 2015Q3

REPORT INFORMATION
  Report Type: Spontaneous
  Country: FR (occurrence: FR)
  Receive Date: 20150831
  Receipt Date: 20150831
  Transmission Date: 20151125
  Serious: Yes (Other)
  Sender: FDA-Public Use
  Company Number: FR-PFIZER INC-2015282871

PATIENT
  Age: 54 Year
  Sex: Female

DRUGS (14)
  1. EUPANTOL [Concomitant]
     Active Substance: PANTOPRAZOLE SODIUM
     Dosage: 40 MG, UNK
  2. GAVISCON [Concomitant]
     Active Substance: ALUMINUM HYDROXIDE\MAGNESIUM CARBONATE
     Dosage: UNK
  3. CALCIPARINE [Concomitant]
     Active Substance: HEPARIN CALCIUM
     Dosage: 7500 IU/0.3 ML, UNK
  4. GUTRON [Concomitant]
     Active Substance: MIDODRINE
     Dosage: 2.5 MG, UNK
  5. CORTANCYL [Concomitant]
     Active Substance: PREDNISONE
     Dosage: UNK
     Route: 048
  6. REVATIO [Suspect]
     Active Substance: SILDENAFIL CITRATE
     Indication: PULMONARY ARTERIAL HYPERTENSION
     Dosage: 20 MG, 3X/DAY
     Route: 048
     Dates: start: 20150424
  7. UN ALFA [Concomitant]
     Active Substance: ALFACALCIDOL
     Dosage: 0.25 ?G, UNK
     Route: 048
  8. ACTONEL [Concomitant]
     Active Substance: RISEDRONATE SODIUM
     Dosage: 30 MG, UNK
  9. VOLIBRIS [Suspect]
     Active Substance: AMBRISENTAN
     Indication: PULMONARY ARTERIAL HYPERTENSION
     Dosage: 5 MG, 1X/DAY
     Route: 048
     Dates: start: 20150424, end: 20150617
  10. SMECTA [Concomitant]
     Active Substance: MONTMORILLONITE
     Dosage: UNK
  11. MIMPARA [Concomitant]
     Active Substance: CINACALCET HYDROCHLORIDE
     Dosage: 30 MG, UNK
  12. CALCIDOSE VITAMINE D [Concomitant]
     Active Substance: CALCIUM\CHOLECALCIFEROL
     Dosage: UNK
     Route: 048
  13. BICARBONATE SODIUM [Concomitant]
     Dosage: UNK
  14. TAHOR [Concomitant]
     Active Substance: ATORVASTATIN CALCIUM
     Dosage: 10 MG, UNK

REACTIONS (5)
  - Pain in extremity [Unknown]
  - Jugular vein distension [Unknown]
  - Hypoacusis [Not Recovered/Not Resolved]
  - Skin necrosis [Unknown]
  - Joint swelling [Unknown]

NARRATIVE: CASE EVENT DATE: 201504
